FAERS Safety Report 10843428 (Version 1)
Quarter: 2015Q1

REPORT INFORMATION
  Report Type: Report from Study
  Country: US (occurrence: US)
  Receive Date: 20150220
  Receipt Date: 20150220
  Transmission Date: 20150721
  Serious: Yes (Other)
  Sender: FDA-Public Use
  Company Number: US-ABBVIE-14P-163-1263647-00

PATIENT
  Age: 44 Year
  Sex: Female

DRUGS (4)
  1. HUMIRA [Suspect]
     Active Substance: ADALIMUMAB
     Dates: start: 20140701, end: 20140701
  2. CELEXA [Concomitant]
     Active Substance: CITALOPRAM HYDROBROMIDE
     Indication: PRODUCT USED FOR UNKNOWN INDICATION
  3. HUMIRA [Suspect]
     Active Substance: ADALIMUMAB
     Indication: CROHN^S DISEASE
     Dates: start: 20111128
  4. HUMIRA [Suspect]
     Active Substance: ADALIMUMAB
     Dates: start: 20140716

REACTIONS (10)
  - Musculoskeletal discomfort [Recovering/Resolving]
  - Inappropriate schedule of drug administration [Unknown]
  - Influenza like illness [Recovered/Resolved]
  - Furuncle [Recovering/Resolving]
  - Ileostomy closure [Recovering/Resolving]
  - Crohn^s disease [Recovered/Resolved]
  - Ileostomy [Recovered/Resolved]
  - Intestinal resection [Recovered/Resolved]
  - Crohn^s disease [Recovering/Resolving]
  - Inappropriate schedule of drug administration [Recovered/Resolved]

NARRATIVE: CASE EVENT DATE: 20140715
